FAERS Safety Report 21842057 (Version 2)
Quarter: 2023Q1

REPORT INFORMATION
  Report Type: Spontaneous
  Country: BR (occurrence: BR)
  Receive Date: 20230110
  Receipt Date: 20230123
  Transmission Date: 20230417
  Serious: Yes (Hospitalization, Other)
  Sender: FDA-Public Use
  Company Number: BR-Accord-295910

PATIENT
  Age: 48 Year
  Sex: Male
  Weight: 87.15 kg

DRUGS (3)
  1. CISPLATIN [Suspect]
     Active Substance: CISPLATIN
     Indication: Product used for unknown indication
     Route: 042
     Dates: start: 20220112, end: 20220420
  2. DOCETAXEL [Concomitant]
     Active Substance: DOCETAXEL
     Dosage: 21 DAY CYCLE
     Route: 042
     Dates: start: 20220112, end: 20220420
  3. ERBITUX [Concomitant]
     Active Substance: CETUXIMAB
     Dosage: 250 MG/M2/ 21 DAY CYCLE
     Route: 042
     Dates: start: 20220112

REACTIONS (2)
  - Febrile neutropenia [Recovered/Resolved]
  - Mucosal inflammation [Recovered/Resolved]

NARRATIVE: CASE EVENT DATE: 20220405
